FAERS Safety Report 21841952 (Version 1)
Quarter: 2023Q1

REPORT INFORMATION
  Report Type: Spontaneous
  Country: US (occurrence: None)
  Receive Date: 20230109
  Receipt Date: 20230109
  Transmission Date: 20230417
  Serious: No
  Sender: FDA-Public Use
  Company Number: None

PATIENT
  Sex: Male

DRUGS (1)
  1. NORDITROPIN [Suspect]
     Active Substance: SOMATROPIN
     Indication: Short stature
     Dosage: OTHER FREQUENCY : NIGHTLY;?
     Route: 058
     Dates: start: 202208

REACTIONS (3)
  - Device defective [None]
  - Device mechanical issue [None]
  - Drug dose omission by device [None]
